FAERS Safety Report 7022750-3 (Version None)
Quarter: 2010Q3

REPORT INFORMATION
  Report Type: 
  Country: None (occurrence: None)
  Receive Date: 20100930
  Receipt Date: 20100928
  Transmission Date: 20110219
  Serious: Yes (Other)
  Sender: FDA-Public Use
  Company Number: A0883590A

PATIENT
  Age: 38 Year
  Sex: Female

DRUGS (5)
  1. EPZICOM [Suspect]
     Indication: ANTIVIRAL TREATMENT
     Dates: end: 20100703
  2. INTELENCE [Suspect]
     Indication: ANTIVIRAL TREATMENT
     Dates: end: 20100702
  3. PREZISTA [Suspect]
     Indication: ANTIVIRAL TREATMENT
     Dates: start: 20100703
  4. ISENTRESS [Suspect]
     Indication: ANTIVIRAL TREATMENT
     Dates: end: 20100702
  5. NORVIR [Suspect]
     Indication: ANTIVIRAL TREATMENT
     Dates: end: 20100703

REACTIONS (2)
  - ABORTION SPONTANEOUS [None]
  - DRUG EXPOSURE DURING PREGNANCY [None]
